FAERS Safety Report 7013349-3 (Version None)
Quarter: 2010Q3

REPORT INFORMATION
  Report Type: 
  Country: None (occurrence: None)
  Receive Date: 20100924
  Receipt Date: 20100914
  Transmission Date: 20110219
  Serious: Yes (Disabling)
  Sender: FDA-Public Use
  Company Number: DE-WYE-G06651010

PATIENT
  Sex: Male

DRUGS (2)
  1. VENLAFAXINE HCL [Suspect]
     Indication: SOCIAL PHOBIA
     Route: 048
     Dates: start: 20060101, end: 20080101
  2. VENLAFAXINE HCL [Suspect]
     Route: 048
     Dates: start: 20080101, end: 20090101

REACTIONS (5)
  - AMNESIA [None]
  - BRAIN INJURY [None]
  - DRUG WITHDRAWAL SYNDROME [None]
  - LIBIDO DECREASED [None]
  - MIGRAINE [None]
